FAERS Safety Report 4675012-3 (Version None)
Quarter: 2005Q2

REPORT INFORMATION
  Report Type: 
  Country: None (occurrence: None)
  Receive Date: 20050526
  Receipt Date: 20050428
  Transmission Date: 20051028
  Serious: Yes (Other)
  Sender: FDA-Public Use
  Company Number: AU-MERCK-0504AUS00229

PATIENT
  Sex: Female

DRUGS (2)
  1. ZETIA [Suspect]
     Indication: BLOOD CHOLESTEROL INCREASED
     Route: 048
     Dates: end: 20050101
  2. [THERAPY UNSPECIFIED] [Concomitant]
     Route: 065
     Dates: end: 20050101

REACTIONS (9)
  - ADVERSE EVENT [None]
  - BLOOD PRESSURE INCREASED [None]
  - CHEST PAIN [None]
  - DRUG TOXICITY [None]
  - FALL [None]
  - HEPATITIS [None]
  - HEPATOCELLULAR DAMAGE [None]
  - MYALGIA [None]
  - ORGAN FAILURE [None]
